FAERS Safety Report 7522472-6 (Version None)
Quarter: 2011Q2

REPORT INFORMATION
  Report Type: 
  Country: None (occurrence: None)
  Receive Date: 20110603
  Receipt Date: 20110601
  Transmission Date: 20111010
  Serious: Yes (Death)
  Sender: FDA-Public Use
  Company Number: DE-B.I. PHARMACEUTICALS,INC./RIDGEFIELD-2011-DE-03394DE

PATIENT
  Sex: Male

DRUGS (8)
  1. LORZAAR 50/12.5 [Concomitant]
     Indication: HYPERTENSION
     Dosage: 50/12.5
  2. PRAVASTATIN SODIUM [Concomitant]
     Indication: HYPERCHOLESTEROLAEMIA
  3. PRADAXA [Suspect]
     Indication: PROPHYLAXIS
     Dosage: 2 ANZ
     Route: 048
     Dates: start: 20101018
  4. PRADAXA [Suspect]
     Indication: ATRIAL FIBRILLATION
  5. LORZAAR 50/12.5 [Concomitant]
     Indication: CARDIAC FAILURE
  6. ASPIRIN [Concomitant]
     Indication: MYOCARDIAL INFARCTION
  7. BELOC [Concomitant]
     Indication: HYPERTENSION
  8. NORVASC [Concomitant]
     Indication: HYPERTENSION

REACTIONS (1)
  - DEATH [None]
